FAERS Safety Report 23254018 (Version 2)
Quarter: 2023Q4

REPORT INFORMATION
  Report Type: Report from Study
  Country: MX (occurrence: MX)
  Receive Date: 20231202
  Receipt Date: 20231215
  Transmission Date: 20240110
  Serious: Yes (Other)
  Sender: FDA-Public Use
  Company Number: MX-002147023-NVSC2023MX254588

PATIENT
  Sex: Female
  Weight: 68 kg

DRUGS (4)
  1. EXFORGE [Suspect]
     Active Substance: AMLODIPINE BESYLATE\VALSARTAN
     Indication: Hypertension
     Dosage: 1 DOSAGE FORM, QD (STARTED: 5 YEARS AGO APPROX AND STOPPED ON 2 YEARS AGO APPROX.))
     Route: 048
  2. EXFORGE [Suspect]
     Active Substance: AMLODIPINE BESYLATE\VALSARTAN
     Dosage: 0.5 DOSAGE FORM, QD (STARTED: 2 YEARS AGO APPROX AND STOPPED)
     Route: 048
  3. EXFORGE [Suspect]
     Active Substance: AMLODIPINE BESYLATE\VALSARTAN
     Dosage: UNK (STOPPED ABOUT 3 YEARS AGO)
     Route: 048
  4. EXFORGE [Suspect]
     Active Substance: AMLODIPINE BESYLATE\VALSARTAN
     Dosage: 0.5 DOSAGE FORM, QD (STARTED: 2 YEARS AGO )
     Route: 048

REACTIONS (5)
  - Diabetes mellitus [Unknown]
  - Dizziness [Recovered/Resolved]
  - Blood pressure inadequately controlled [Recovered/Resolved]
  - Drug intolerance [Recovered/Resolved]
  - Off label use [Not Recovered/Not Resolved]
